FAERS Safety Report 19205193 (Version 1)
Quarter: 2021Q2

REPORT INFORMATION
  Report Type: Spontaneous
  Country: US (occurrence: US)
  Receive Date: 20210430
  Receipt Date: 20210430
  Transmission Date: 20210717
  Serious: Yes (Hospitalization)
  Sender: FDA-Public Use
  Company Number: None

PATIENT
  Age: 8 Year
  Sex: Male

DRUGS (11)
  1. PROPRANOLOL [Concomitant]
     Active Substance: PROPRANOLOL HYDROCHLORIDE
  2. NYSTATIN. [Concomitant]
     Active Substance: NYSTATIN
  3. FOCALIN XR [Concomitant]
     Active Substance: DEXMETHYLPHENIDATE HYDROCHLORIDE
  4. CALCIUM CARB [Concomitant]
     Active Substance: CALCIUM CARBONATE
  5. CLONIDINE DIS [Concomitant]
  6. FOLIC ACID. [Concomitant]
     Active Substance: FOLIC ACID
  7. RENA?VITE [Concomitant]
     Active Substance: ASCORBIC ACID\BIOTIN\CALCIUM PANTOTHENATE\CYANOCOBALAMIN\FOLIC ACID\NIACINAMIDE\PYRIDOXINE HYDROCHLORIDE\RIBOFLAVIN\THIAMINE MONONITRATE
  8. KATERZIA [Concomitant]
     Active Substance: AMLODIPINE BENZOATE
  9. SEVELAMER [Concomitant]
     Active Substance: SEVELAMER
  10. RETACRIT [Suspect]
     Active Substance: EPOETIN ALFA-EPBX
     Indication: ANAEMIA OF CHRONIC DISEASE
     Dosage: OTHER STRENGTH: 0.7 ML 10,000 U/ML; Q7D SQ?
     Route: 058
     Dates: start: 20190831
  11. CALCITRIOL. [Concomitant]
     Active Substance: CALCITRIOL

REACTIONS (2)
  - Nephrectomy [None]
  - Dialysis [None]

NARRATIVE: CASE EVENT DATE: 20210414
